FAERS Safety Report 9431329 (Version 2)
Quarter: 2013Q3

REPORT INFORMATION
  Report Type: Spontaneous
  Country: US (occurrence: US)
  Receive Date: 20130730
  Receipt Date: 20130808
  Transmission Date: 20140515
  Serious: Yes (Other)
  Sender: FDA-Public Use
  Company Number: US-PERRIGO-13US007620

PATIENT
  Age: 56 Year
  Sex: Female
  Weight: 61.22 kg

DRUGS (5)
  1. LOPERAMIDE HYDROCHLORIDE 2 MG 224 [Suspect]
     Indication: DIARRHOEA
     Dosage: 4 MG, SINGLE
     Route: 048
     Dates: start: 20130719, end: 20130719
  2. LOPERAMIDE HYDROCHLORIDE 2 MG 224 [Suspect]
     Dosage: PRN
     Route: 048
  3. LORATADINE 10 MG 612 [Suspect]
     Indication: HYPERSENSITIVITY
     Dosage: 10 MG, QD
     Route: 048
     Dates: start: 2009, end: 20130719
  4. HYDROXYZINE [Suspect]
     Indication: HYPERSENSITIVITY
     Dosage: UNK
     Route: 065
     Dates: start: 20130719
  5. HYDROXYZINE [Suspect]
     Indication: URTICARIA

REACTIONS (4)
  - Hypersensitivity [Recovering/Resolving]
  - Urticaria [Recovering/Resolving]
  - Oedema peripheral [Recovering/Resolving]
  - Swollen tongue [Recovering/Resolving]
